FAERS Safety Report 5341267-5 (Version None)
Quarter: 2007Q2

REPORT INFORMATION
  Report Type: 
  Country: None (occurrence: None)
  Receive Date: 20070404
  Receipt Date: 20061222
  Transmission Date: 20071010
  Serious: Yes (Other)
  Sender: FDA-Public Use
  Company Number: 2006155743

PATIENT
  Age: 26 Year
  Sex: Male
  Weight: 72.6 kg

DRUGS (3)
  1. GEODON [Suspect]
     Indication: BIPOLAR DISORDER
     Dosage: (2 IN 1 D)
     Dates: start: 20061201, end: 20061222
  2. LEXAPRO [Suspect]
     Indication: BIPOLAR DISORDER
     Dosage: 20 MG (20  MG, 1 IN 1 D)
  3. ALL OTHER NON-THERAPEUTIC PRODUCTS (ALL OTHER NON-THERAPEUTIC PRODUCTS [Suspect]

REACTIONS (3)
  - DRUG INTERACTION [None]
  - PAIN IN JAW [None]
  - SWOLLEN TONGUE [None]
